FAERS Safety Report 20003214 (Version 1)
Quarter: 2021Q4

REPORT INFORMATION
  Report Type: Spontaneous
  Country: US (occurrence: US)
  Receive Date: 20211027
  Receipt Date: 20211027
  Transmission Date: 20220304
  Serious: Yes (Hospitalization)
  Sender: FDA-Public Use
  Company Number: US-MYLANLABS-2021M1076408

PATIENT
  Age: 38 Year
  Sex: Female

DRUGS (3)
  1. VALPROIC ACID [Suspect]
     Active Substance: VALPROIC ACID
     Indication: Seizure
     Dosage: SIXTY 500 MG DR TABLETS
     Route: 048
  2. LEVETIRACETAM [Suspect]
     Active Substance: LEVETIRACETAM
     Indication: Seizure
     Dosage: SIXTY 750 MG TABLETS
     Route: 048
  3. MEROPENEM [Concomitant]
     Active Substance: MEROPENEM
     Indication: Toxicity to various agents
     Dosage: 1 GRAM
     Route: 042

REACTIONS (5)
  - Hyperammonaemia [Unknown]
  - Somnolence [Unknown]
  - Hypotension [Unknown]
  - Toxicity to various agents [Unknown]
  - Intentional overdose [Unknown]
